FAERS Safety Report 7775793-6 (Version None)
Quarter: 2011Q3

REPORT INFORMATION
  Report Type: 
  Country: None (occurrence: None)
  Receive Date: 20110923
  Receipt Date: 20110920
  Transmission Date: 20111222
  Serious: Yes (Hospitalization)
  Sender: FDA-Public Use
  Company Number: US-B.I. PHARMACEUTICALS,INC./RIDGEFIELD-2011-BP-22560BP

PATIENT
  Age: 60 Year
  Sex: Male

DRUGS (11)
  1. MAGNESIUM OXIDE [Concomitant]
     Dosage: 800 MG
  2. LISINOPRIL [Concomitant]
     Dosage: 20 MG
  3. SIMVASTATIN [Concomitant]
     Dosage: 20 MG
  4. POTASSIUM CHLORIDE [Concomitant]
     Dosage: 20 MEQ
  5. PEPCID [Concomitant]
     Dosage: 20 MG
  6. NEURONTIN [Concomitant]
     Dosage: 200 MG
  7. LASIX [Concomitant]
     Dosage: 20 MG
  8. COREG [Concomitant]
     Dosage: 12.5 MG
  9. PRADAXA [Suspect]
     Indication: ATRIAL FIBRILLATION
     Dosage: 300 MG
     Dates: start: 20110901, end: 20110909
  10. DIGOXIN [Concomitant]
     Dosage: 0.25 MG
  11. ALLOPURINOL [Concomitant]
     Dosage: 300 MG

REACTIONS (3)
  - GASTROINTESTINAL HAEMORRHAGE [None]
  - GASTRITIS [None]
  - HAEMATOCHEZIA [None]
